FAERS Safety Report 8606160-0 (Version None)
Quarter: 2012Q3

REPORT INFORMATION
  Report Type: 
  Country: None (occurrence: None)
  Receive Date: 20120820
  Receipt Date: 19960220
  Transmission Date: 20120928
  Serious: Yes (Other)
  Sender: FDA-Public Use
  Company Number: US-ROCHE-1101289

PATIENT
  Sex: Female

DRUGS (11)
  1. EPINEPHRINE [Concomitant]
  2. ATENOLOL [Concomitant]
  3. LIDOCAINE [Concomitant]
     Route: 042
  4. ACTIVASE [Suspect]
     Indication: CHEST PAIN
     Dosage: 50 CCEVERY 30 MINUTES
     Route: 041
     Dates: start: 19960107
  5. DOPAMINE HCL [Concomitant]
     Dosage: 100 CC PER 1 HOUR
     Route: 041
  6. PROCARDIA [Concomitant]
  7. DOPAMINE HCL [Concomitant]
     Dosage: 53 CC PER 1 HOUR
     Route: 041
  8. ATROPINE [Concomitant]
  9. ACTIVASE [Suspect]
     Indication: VENTRICULAR FIBRILLATION
  10. PROBENECID [Concomitant]
  11. LIDOCAINE [Concomitant]
     Dosage: 30 CC PER 1 HOUR

REACTIONS (2)
  - UNRESPONSIVE TO STIMULI [None]
  - HYPOTENSION [None]
